FAERS Safety Report 8496403-9 (Version None)
Quarter: 2012Q2

REPORT INFORMATION
  Report Type: 
  Country: None (occurrence: None)
  Receive Date: 20120405
  Receipt Date: 20091202
  Transmission Date: 20120825
  Serious: Yes (Life-Threatening, Hospitalization, Disabling, Other)
  Sender: FDA-Public Use
  Company Number: PHEH2009US14842

PATIENT

DRUGS (7)
  1. GLYBURIDE [Concomitant]
  2. RECLAST (ZOLEDRONATE) SOLUTION FOR INJECTION [Suspect]
     Indication: OSTEOPOROSIS
     Dosage: 5 MG/100 ML ONCE PER YEAR INTRAVENOUS
     Route: 042
     Dates: start: 20091014
  3. MICARDIS [Concomitant]
  4. EVISTA [Concomitant]
  5. SIMVASTATIN [Concomitant]
  6. DIURETICS (NO INGREDIENTS/SUBSTANCES) [Concomitant]
  7. METFORMIN HCL [Concomitant]

REACTIONS (6)
  - PYREXIA [None]
  - HAEMODIALYSIS [None]
  - URINE OUTPUT DECREASED [None]
  - CHILLS [None]
  - DEHYDRATION [None]
  - PROTEINURIA [None]
